FAERS Safety Report 5626588-0 (Version None)
Quarter: 2008Q1

REPORT INFORMATION
  Report Type: 
  Country: None (occurrence: None)
  Receive Date: 20080214
  Receipt Date: 20080207
  Transmission Date: 20080703
  Serious: Yes (Death)
  Sender: FDA-Public Use
  Company Number: US-GENENTECH-255764

PATIENT

DRUGS (4)
  1. AVASTIN [Suspect]
     Indication: NEOPLASM MALIGNANT
     Dosage: 10 MG/KG, UNK
     Route: 042
  2. FLUOROURACIL [Suspect]
     Indication: NEOPLASM MALIGNANT
     Dosage: 600 MG/M2, QD
     Route: 042
  3. HYDROXYUREA [Suspect]
     Indication: NEOPLASM MALIGNANT
     Dosage: 500 MG, Q12H
     Route: 048
  4. RADIOTHERAPY [Suspect]
     Indication: NEOPLASM MALIGNANT

REACTIONS (1)
  - SEPSIS [None]
